FAERS Safety Report 6630745-4 (Version None)
Quarter: 2010Q1

REPORT INFORMATION
  Report Type: 
  Country: None (occurrence: None)
  Receive Date: 20100310
  Receipt Date: 20100310
  Transmission Date: 20100710
  Serious: Yes (Other)
  Sender: FDA-Public Use
  Company Number: None

PATIENT
  Age: 5 Year
  Sex: Female
  Weight: 64.8644 kg

DRUGS (1)
  1. IMITREX [Suspect]
     Dosage: 50 ONE PER DAY AS DIR PO
     Route: 048
     Dates: start: 19900101, end: 20100101

REACTIONS (2)
  - PRODUCT SUBSTITUTION ISSUE [None]
  - VOMITING [None]
